FAERS Safety Report 7003145-5 (Version None)
Quarter: 2010Q3

REPORT INFORMATION
  Report Type: 
  Country: None (occurrence: None)
  Receive Date: 20100920
  Receipt Date: 20100701
  Transmission Date: 20110219
  Serious: No
  Sender: FDA-Public Use
  Company Number: US-ASTRAZENECA-2007UW25202

PATIENT
  Age: 43 Year
  Sex: Female
  Weight: 99.8 kg

DRUGS (6)
  1. SEROQUEL [Suspect]
     Indication: SCHIZOPHRENIA
     Dosage: 200MG - 400MG
     Route: 048
     Dates: start: 19930101
  2. SEROQUEL [Suspect]
     Dosage: 200MG - 400MG
     Route: 048
     Dates: start: 20040101, end: 20070401
  3. RISPERDAL [Concomitant]
     Indication: SCHIZOPHRENIA
     Dates: start: 19940101, end: 20070101
  4. GEODON [Concomitant]
  5. HALDOL [Concomitant]
  6. TRAZODONE HCL [Concomitant]

REACTIONS (10)
  - ADVERSE DRUG REACTION [None]
  - ARTHRITIS [None]
  - BLOOD CHOLESTEROL INCREASED [None]
  - BLOOD TRIGLYCERIDES INCREASED [None]
  - DIABETIC COMPLICATION [None]
  - HEADACHE [None]
  - HYPERGLYCAEMIA [None]
  - HYPERLIPIDAEMIA [None]
  - IRON DEFICIENCY [None]
  - TYPE 2 DIABETES MELLITUS [None]
